FAERS Safety Report 9189014 (Version 3)
Quarter: 2014Q1

REPORT INFORMATION
  Report Type: Spontaneous
  Country: US (occurrence: US)
  Receive Date: 20130326
  Receipt Date: 20140225
  Transmission Date: 20141002
  Serious: No
  Sender: FDA-Public Use
  Company Number: US-BIOGENIDEC-2013BI025941

PATIENT
  Sex: Female

DRUGS (14)
  1. TYSABRI [Suspect]
     Indication: MULTIPLE SCLEROSIS
     Route: 042
     Dates: start: 20100427, end: 20121219
  2. AVONEX [Concomitant]
     Indication: MULTIPLE SCLEROSIS
     Route: 030
  3. AVONEX [Concomitant]
     Indication: MULTIPLE SCLEROSIS
     Route: 030
     Dates: start: 20020201
  4. LIPITOR [Concomitant]
  5. EFFEXOR XR [Concomitant]
  6. MAXALT [Concomitant]
     Indication: MIGRAINE
  7. LISINOPRIL [Concomitant]
  8. LOVASA [Concomitant]
  9. CLONAZEPAM [Concomitant]
  10. CALCIUM [Concomitant]
  11. VITAMIN C [Concomitant]
  12. VITAMIN D3 [Concomitant]
  13. BABY ASPIRIN [Concomitant]
  14. CINNAMON [Concomitant]

REACTIONS (7)
  - Drug specific antibody present [Unknown]
  - Stress [Not Recovered/Not Resolved]
  - Gait disturbance [Not Recovered/Not Resolved]
  - Balance disorder [Not Recovered/Not Resolved]
  - Feeling abnormal [Unknown]
  - Dizziness [Not Recovered/Not Resolved]
  - Drug ineffective [Unknown]
